FAERS Safety Report 5213084-8 (Version None)
Quarter: 2007Q1

REPORT INFORMATION
  Report Type: 
  Country: None (occurrence: None)
  Receive Date: 20070117
  Receipt Date: 20060719
  Transmission Date: 20070707
  Serious: Yes (Other)
  Sender: FDA-Public Use
  Company Number: HECT-10213

PATIENT
  Age: 32 Year
  Sex: Male
  Weight: 65.5 kg

DRUGS (1)
  1. HECTOROL [Suspect]
     Indication: HYPERPARATHYROIDISM SECONDARY
     Dosage: 6 MCG 3X/W IV
     Route: 042
     Dates: start: 20060621, end: 20060913

REACTIONS (2)
  - BLOOD PARATHYROID HORMONE INCREASED [None]
  - DRUG INEFFECTIVE [None]
